FAERS Safety Report 5320454-6 (Version None)
Quarter: 2007Q1

REPORT INFORMATION
  Report Type: 
  Country: None (occurrence: None)
  Receive Date: 20070215
  Receipt Date: 20061120
  Transmission Date: 20070707
  Serious: Yes (Other)
  Sender: FDA-Public Use
  Company Number: MC200600780

PATIENT
  Age: 70 Year
  Sex: Male

DRUGS (3)
  1. ANGIOMAX [Suspect]
     Indication: PERIPHERAL REVASCULARISATION
     Dosage: 0.75 MG/KG, BOLUS, IV BOLUS
     Route: 042
     Dates: start: 20061107, end: 20061107
  2. ANGIOMAX [Suspect]
     Indication: PERIPHERAL REVASCULARISATION
     Dosage: 0.75 MG/KG, BOLUS, IV BOLUS
     Route: 042
     Dates: start: 20061107, end: 20061107
  3. COUMADIN [Concomitant]

REACTIONS (1)
  - THROMBOSIS [None]
